FAERS Safety Report 4663684-9 (Version None)
Quarter: 2005Q2

REPORT INFORMATION
  Report Type: 
  Country: None (occurrence: None)
  Receive Date: 20050517
  Receipt Date: 20050510
  Transmission Date: 20051028
  Serious: Yes (Death, Other)
  Sender: FDA-Public Use
  Company Number: 05-05-0808

PATIENT
  Age: 63 Year
  Sex: Female

DRUGS (1)
  1. CLOZAPINE [Suspect]
     Indication: SCHIZOPHRENIA
     Dosage: 25MG QD ORAL
     Route: 048
     Dates: start: 20050201, end: 20050401

REACTIONS (3)
  - RENAL FAILURE [None]
  - URINARY TRACT INFECTION [None]
  - UROSEPSIS [None]
